FAERS Safety Report 7151726-0 (Version None)
Quarter: 2010Q4

REPORT INFORMATION
  Report Type: 
  Country: None (occurrence: None)
  Receive Date: 20101210
  Receipt Date: 20101203
  Transmission Date: 20110411
  Serious: Yes (Other)
  Sender: FDA-Public Use
  Company Number: US-US-EMD SERONO, INC.-7030826

PATIENT
  Sex: Female
  Weight: 68 kg

DRUGS (4)
  1. REBIF [Suspect]
     Indication: MULTIPLE SCLEROSIS
     Route: 058
     Dates: start: 20070622
  2. CLARITIN [Concomitant]
     Indication: SINUS DISORDER
  3. SYNTHROID [Concomitant]
     Indication: HYPOTHYROIDISM
  4. LISINOPRIL [Concomitant]
     Indication: HYPERTENSION
     Dates: start: 20080101

REACTIONS (5)
  - BREAST MASS [None]
  - EMPHYSEMA [None]
  - LYMPHADENOPATHY [None]
  - PNEUMONIA MYCOPLASMAL [None]
  - PULMONARY FIBROSIS [None]
